FAERS Safety Report 19747216 (Version 2)
Quarter: 2022Q2

REPORT INFORMATION
  Report Type: Spontaneous
  Country: ES (occurrence: ES)
  Receive Date: 20210826
  Receipt Date: 20220420
  Transmission Date: 20220721
  Serious: Yes (Hospitalization)
  Sender: FDA-Public Use
  Company Number: ES-LUPIN PHARMACEUTICALS INC.-2021-15734

PATIENT
  Age: 8 Month
  Sex: Male

DRUGS (5)
  1. RIFAMPIN [Suspect]
     Active Substance: RIFAMPIN
     Indication: Pulmonary tuberculosis
     Dosage: UNK (INITIAL DOSAGE NOT STATED; ADMINISTERED TO THE INFANT)
     Route: 065
  2. RIFAMPIN [Suspect]
     Active Substance: RIFAMPIN
     Dosage: 15 MILLIGRAM/KILOGRAM, QD (ADMINISTERED TO THE INFANT)
     Route: 065
  3. PYRIDOXINE [Concomitant]
     Active Substance: PYRIDOXINE
     Indication: Vitamin supplementation
     Dosage: UNK (ADMINISTERED TO THE INFANT,LATER RE-INITIATED AND COMPLETED AS TOTAL 6 MONTH THERAPY)
     Route: 065
  4. ISONIAZID [Concomitant]
     Active Substance: ISONIAZID
     Indication: Pulmonary tuberculosis
     Dosage: INITIAL DOSAGE NOT STATED; ADMINISTERED TO THE INFANT
     Route: 065
  5. ISONIAZID [Concomitant]
     Active Substance: ISONIAZID
     Dosage: 10 MILLIGRAM/KILOGRAM, QD (ADMINISTERED TO THE INFANT)
     Route: 065

REACTIONS (2)
  - Coagulopathy [Recovered/Resolved]
  - Vitamin K deficiency [Unknown]
